FAERS Safety Report 18965017 (Version 1)
Quarter: 2021Q1

REPORT INFORMATION
  Report Type: Spontaneous
  Country: US (occurrence: US)
  Receive Date: 20210303
  Receipt Date: 20210303
  Transmission Date: 20210420
  Serious: No
  Sender: FDA-Public Use
  Company Number: US-AMNEAL PHARMACEUTICALS-2020-AMRX-01648

PATIENT
  Sex: Male
  Weight: 98.43 kg

DRUGS (11)
  1. METFORMIN [Concomitant]
     Active Substance: METFORMIN HYDROCHLORIDE
     Indication: DIABETES MELLITUS
     Dosage: 500 MILLIGRAM, 2 /DAY, AT 1AM AND 1PM
     Route: 065
  2. SERTRALINE [Concomitant]
     Active Substance: SERTRALINE HYDROCHLORIDE
     Indication: ANXIETY
     Dosage: 50 MILLIGRAM, MORNING, ONCE DAILY
     Route: 065
  3. ATORVASTATIN [Concomitant]
     Active Substance: ATORVASTATIN
     Indication: BLOOD CHOLESTEROL ABNORMAL
     Dosage: UNK UNK, MORNING, ONCE DAILY
     Route: 065
  4. VENTOLIN [Concomitant]
     Active Substance: ALBUTEROL SULFATE
     Indication: PRODUCT USED FOR UNKNOWN INDICATION
     Dosage: UNK, AS NEEDED
  5. LOSARTAN. [Concomitant]
     Active Substance: LOSARTAN
     Indication: HYPERTENSION
     Dosage: 25 MILLIGRAM, MORNING, ONCE DAILY
     Route: 065
  6. RYTARY [Suspect]
     Active Substance: CARBIDOPA\LEVODOPA
     Indication: PARKINSON^S DISEASE
     Dosage: 10 CAPSULES, DAILY, 2 CAPSULES BY MOUTH 4 TIMES A DAY AND TAKE 2 CAP EVERY NIGHT AT BED
     Route: 048
     Dates: start: 20191031
  7. RYTARY [Suspect]
     Active Substance: CARBIDOPA\LEVODOPA
     Dosage: 12 CAPSULES, DAILY, 2 CAPSULES BY MOUTH 5 TIMES DAILY AND TAKE 2 CAPS EVERY NIGHT AT BEDTIME
     Route: 048
  8. GABAPENTIN. [Concomitant]
     Active Substance: GABAPENTIN
     Indication: NEUROPATHY PERIPHERAL
     Dosage: 300 MILLIGRAM, 2 /DAY, 1 CAPSULE AM AND 1 CAP AT PM
     Route: 065
  9. MONTELUKAST [Concomitant]
     Active Substance: MONTELUKAST SODIUM
     Indication: ASTHMA
     Dosage: 10 MILLIGRAM, MORNING, ONCE DAILY
     Route: 065
  10. RYTARY [Suspect]
     Active Substance: CARBIDOPA\LEVODOPA
     Dosage: 13 CAPSULES, DAILY, 2 CAPSULES 5 TIMES A DAY (7AM?10AM?1PM?4PM?7PM) AND 2?3 CAPS AT 10 OR 11 PM
     Route: 048
     Dates: start: 20200602
  11. BREO ELLIPTA [Concomitant]
     Active Substance: FLUTICASONE FUROATE\VILANTEROL TRIFENATATE
     Indication: ASTHMA
     Dosage: UNK UNK, MORNING, ONCE

REACTIONS (2)
  - Therapeutic response shortened [Recovering/Resolving]
  - Muscle spasms [Recovering/Resolving]
